FAERS Safety Report 9730377 (Version 2)
Quarter: 2013Q4

REPORT INFORMATION
  Report Type: Report from Study
  Country: DK (occurrence: DK)
  Receive Date: 20131202
  Receipt Date: 20131202
  Transmission Date: 20140711
  Serious: Yes (Hospitalization)
  Sender: FDA-Public Use
  Company Number: PHHO2013DK008874

PATIENT
  Sex: 0

DRUGS (8)
  1. BLINDED ALISKIREN [Suspect]
     Indication: CARDIAC FAILURE
     Dosage: DOUBLE BLIND
     Route: 048
     Dates: start: 20130701
  2. BLINDED ENALAPRIL [Suspect]
     Indication: CARDIAC FAILURE
     Dosage: DOUBLE BLIND
     Route: 048
     Dates: start: 20130701
  3. BLINDED NO TREATMENT RECEIVED [Suspect]
     Indication: CARDIAC FAILURE
     Dosage: DOUBLE BLIND
     Route: 048
     Dates: start: 20130701
  4. XARELTO [Concomitant]
     Indication: ATRIAL FLUTTER
     Dosage: 20 MG, QD (20 MG X 1)
     Dates: start: 20120628
  5. SELOZOK [Concomitant]
     Indication: CARDIAC FAILURE
     Dosage: 50 MG, BID
     Dates: start: 20120628
  6. SELOZOK [Concomitant]
     Indication: ATRIAL FLUTTER
     Dosage: 75 MG, UNK
  7. SIMVASTATIN [Concomitant]
     Indication: HYPERCHOLESTEROLAEMIA
     Dosage: 40 MG, QD
     Dates: start: 20120628
  8. MAGNYL [Concomitant]
     Indication: PROPHYLAXIS
     Dosage: 75 MG, QD
     Dates: start: 20120627

REACTIONS (3)
  - Atrial flutter [Recovered/Resolved]
  - Tachycardia [Recovered/Resolved]
  - Subarachnoid haemorrhage [Recovered/Resolved with Sequelae]
